FAERS Safety Report 13288589 (Version 1)
Quarter: 2017Q1

REPORT INFORMATION
  Report Type: Spontaneous
  Country: US (occurrence: US)
  Receive Date: 20170302
  Receipt Date: 20170302
  Transmission Date: 20170428
  Serious: No
  Sender: FDA-Public Use
  Company Number: US-PFIZER INC-2017086104

PATIENT
  Sex: Male

DRUGS (1)
  1. XELJANZ [Suspect]
     Active Substance: TOFACITINIB CITRATE
     Dosage: 5 MG, UNK

REACTIONS (15)
  - Fatigue [Unknown]
  - Blood pressure increased [Unknown]
  - Dehydration [Unknown]
  - Spinal pain [Unknown]
  - Musculoskeletal stiffness [Unknown]
  - Depression [Unknown]
  - Panic disorder [Unknown]
  - Joint swelling [Unknown]
  - Rash [Unknown]
  - Rhinitis allergic [Unknown]
  - Burning sensation [Unknown]
  - Nocturia [Unknown]
  - Arthralgia [Unknown]
  - Anxiety [Unknown]
  - Syncope [Unknown]
